FAERS Safety Report 23578024 (Version 1)
Quarter: 2024Q1

REPORT INFORMATION
  Report Type: Spontaneous
  Country: FR (occurrence: FR)
  Receive Date: 20240229
  Receipt Date: 20240229
  Transmission Date: 20240410
  Serious: Yes (Hospitalization, Other)
  Sender: FDA-Public Use
  Company Number: FR-002147023-PHHY2014FR111403

PATIENT

DRUGS (5)
  1. VOLTAREN [Suspect]
     Active Substance: DICLOFENAC SODIUM
     Indication: Ankylosing spondylitis
     Dosage: 100 MG, QD (DAILY)
     Route: 048
     Dates: start: 20140811, end: 20140816
  2. DICLOFENAC [Suspect]
     Active Substance: DICLOFENAC
     Indication: Spondylitis
     Dosage: UNK
     Route: 048
     Dates: start: 20140811, end: 20140815
  3. CELLCEPT [Suspect]
     Active Substance: MYCOPHENOLATE MOFETIL
     Indication: Ankylosing spondylitis
     Dosage: 125 MG, QD (DAILY)
     Route: 048
     Dates: start: 201405
  4. CELLCEPT [Suspect]
     Active Substance: MYCOPHENOLATE MOFETIL
     Indication: Spondylitis
     Dosage: 1000 MG, QD (500 MG, BID)
     Route: 048
     Dates: start: 201407, end: 20140816
  5. CELLCEPT [Suspect]
     Active Substance: MYCOPHENOLATE MOFETIL
     Dosage: 1000 MG, QD
     Route: 048
     Dates: start: 201405, end: 20140815

REACTIONS (1)
  - Agranulocytosis [Not Recovered/Not Resolved]

NARRATIVE: CASE EVENT DATE: 20140816
